FAERS Safety Report 8970798 (Version 1)
Quarter: 2012Q4

REPORT INFORMATION
  Report Type: 
  Country: ZA (occurrence: ZA)
  Receive Date: 20121218
  Receipt Date: 20121218
  Transmission Date: 20130627
  Serious: Yes (Hospitalization)
  Sender: FDA-Public Use
  Company Number: ZA-ELI_LILLY_AND_COMPANY-ZA201212003950

PATIENT
  Sex: Female

DRUGS (5)
  1. HUMULIN 30% REGULAR, 70% NPH [Suspect]
     Indication: DIABETES MELLITUS
     Dosage: UNK
     Route: 058
     Dates: start: 201210, end: 201211
  2. METFORMIN [Concomitant]
     Indication: DIABETES MELLITUS
     Dosage: 850 mg, each evening
     Route: 048
  3. ADALAT [Concomitant]
     Indication: BLOOD PRESSURE
     Dosage: 1 DF, each morning
     Route: 048
  4. SIMVASTATIN [Concomitant]
     Indication: BLOOD CHOLESTEROL
     Dosage: 1 DF, each morning
     Route: 048
  5. INSUMAN                            /00646001/ [Concomitant]
     Indication: DIABETES MELLITUS
     Dosage: UNK
     Route: 058
     Dates: start: 201211

REACTIONS (3)
  - Myocardial infarction [Unknown]
  - Angina pectoris [Unknown]
  - Cholelithiasis [Unknown]
